FAERS Safety Report 7033452-1 (Version None)
Quarter: 2010Q4

REPORT INFORMATION
  Report Type: 
  Country: None (occurrence: None)
  Receive Date: 20101007
  Receipt Date: 20100930
  Transmission Date: 20110411
  Serious: Yes (Hospitalization, Other)
  Sender: FDA-Public Use
  Company Number: US-ABBOTT-10P-163-0665279-00

PATIENT
  Sex: Female

DRUGS (12)
  1. HUMIRA [Suspect]
     Indication: RHEUMATOID ARTHRITIS
     Route: 058
     Dates: start: 20100806, end: 20100819
  2. DIAZEPAM [Concomitant]
     Indication: PRODUCT USED FOR UNKNOWN INDICATION
     Route: 048
     Dates: start: 20080101
  3. OXYCODONE [Concomitant]
     Indication: ARTHRALGIA
     Route: 048
     Dates: start: 20080101
  4. AMBIEN [Concomitant]
     Indication: INSOMNIA
     Dosage: AT BEDTIME
     Route: 048
     Dates: start: 20100101
  5. SULFADIAZINE [Concomitant]
     Indication: PRODUCT USED FOR UNKNOWN INDICATION
     Route: 048
     Dates: start: 20080101
  6. VALIUM [Concomitant]
     Indication: PRODUCT USED FOR UNKNOWN INDICATION
  7. FLUCONAZOLE [Concomitant]
     Indication: PRODUCT USED FOR UNKNOWN INDICATION
  8. MELOXICAM [Concomitant]
     Indication: PRODUCT USED FOR UNKNOWN INDICATION
  9. CITALOPRAM HYDROBROMIDE [Concomitant]
     Indication: PRODUCT USED FOR UNKNOWN INDICATION
  10. LORATADINE [Concomitant]
     Indication: PRODUCT USED FOR UNKNOWN INDICATION
  11. VITAMIN D [Concomitant]
     Indication: PRODUCT USED FOR UNKNOWN INDICATION
  12. INTERFERON [Concomitant]
     Indication: PRODUCT USED FOR UNKNOWN INDICATION

REACTIONS (17)
  - ARTHRITIS BACTERIAL [None]
  - CELLULITIS [None]
  - CHEST PAIN [None]
  - CHILLS [None]
  - ERYTHEMA [None]
  - HEADACHE [None]
  - MYOSITIS [None]
  - NAUSEA [None]
  - NECK PAIN [None]
  - NODULE [None]
  - ORAL CANDIDIASIS [None]
  - ORAL FUNGAL INFECTION [None]
  - OSTEOMYELITIS [None]
  - PAIN [None]
  - PYREXIA [None]
  - SKIN LESION [None]
  - SYSTEMIC INFLAMMATORY RESPONSE SYNDROME [None]
